FAERS Safety Report 9556290 (Version 1)
Quarter: 2013Q3

REPORT INFORMATION
  Report Type: Spontaneous
  Country: AT (occurrence: AT)
  Receive Date: 20130926
  Receipt Date: 20130926
  Transmission Date: 20140515
  Serious: Yes (Other)
  Sender: FDA-Public Use
  Company Number: AT-ASTRAZENECA-2013SE70175

PATIENT
  Age: 70 Year
  Sex: Female

DRUGS (1)
  1. VIMOVO [Suspect]
     Indication: HERPES ZOSTER
     Dosage: 500 MG/20 MG TWO TIMES A DAY
     Route: 048
     Dates: start: 20130829, end: 201309

REACTIONS (3)
  - Circulatory collapse [Unknown]
  - Fall [Unknown]
  - Contusion [Unknown]
